FAERS Safety Report 11540245 (Version 1)
Quarter: 2015Q3

REPORT INFORMATION
  Report Type: Report from Study
  Country: CH (occurrence: CH)
  Receive Date: 20150923
  Receipt Date: 20150923
  Transmission Date: 20151125
  Serious: No
  Sender: FDA-Public Use
  Company Number: CH-B.I. PHARMACEUTICALS,INC./RIDGEFIELD-2015-BI-46779SI

PATIENT
  Age: 66 Year
  Sex: Male
  Weight: 87 kg

DRUGS (5)
  1. METFORMIN [Concomitant]
     Active Substance: METFORMIN HYDROCHLORIDE
     Indication: DIABETES MELLITUS
     Route: 065
  2. BIBF 1120 [Suspect]
     Active Substance: NINTEDANIB
     Indication: ADENOCARCINOMA
     Dosage: 400 MG
     Route: 065
     Dates: start: 20150624, end: 20150703
  3. MARCOUMAR [Concomitant]
     Active Substance: PHENPROCOUMON
     Indication: PULMONARY EMBOLISM
     Route: 065
     Dates: start: 201411
  4. SPIRICORT [Concomitant]
     Active Substance: PREDNISOLONE
     Indication: DYSPNOEA
     Route: 065
     Dates: start: 20140814
  5. BIBF 1120 [Suspect]
     Active Substance: NINTEDANIB
     Dosage: 300 MG
     Route: 065
     Dates: start: 20150805

REACTIONS (1)
  - Hepatotoxicity [Recovered/Resolved]

NARRATIVE: CASE EVENT DATE: 20150628
